FAERS Safety Report 18598622 (Version 2)
Quarter: 2020Q4

REPORT INFORMATION
  Report Type: Report from Study
  Country: None (occurrence: US)
  Receive Date: 20201210
  Receipt Date: 20201215
  Transmission Date: 20210114
  Serious: Yes (Other)
  Sender: FDA-Public Use
  Company Number: US-ABBVIE-20K-163-3679382-00

PATIENT
  Sex: Female

DRUGS (2)
  1. VENCLEXTA [Suspect]
     Active Substance: VENETOCLAX
     Indication: NON-HODGKIN^S LYMPHOMA
     Dosage: BY MOUTH EVERY DAY TAKE WITH A MEAL AND WATER
     Route: 048
  2. VENCLEXTA [Suspect]
     Active Substance: VENETOCLAX
     Dosage: 2 TABLETS BY MOUTH EVERY DAY TAKE WITH A MEAL AND WATER
     Route: 048

REACTIONS (4)
  - Lymphoma [Recovered/Resolved]
  - Cough [Unknown]
  - Off label use [Unknown]
  - Lymphoma [Unknown]

NARRATIVE: CASE EVENT DATE: 2020
